FAERS Safety Report 13212249 (Version 1)
Quarter: 2017Q1

REPORT INFORMATION
  Report Type: Spontaneous
  Country: US (occurrence: US)
  Receive Date: 20170210
  Receipt Date: 20170210
  Transmission Date: 20170428
  Serious: Yes (Hospitalization)
  Sender: FDA-Public Use
  Company Number: None

PATIENT
  Age: 62 Year
  Sex: Female

DRUGS (7)
  1. PREDNISONE. [Concomitant]
     Active Substance: PREDNISONE
  2. OLANZAPINE. [Concomitant]
     Active Substance: OLANZAPINE
  3. CYCLOSPORINE 100MG [Suspect]
     Active Substance: CYCLOSPORINE
     Indication: RENAL TRANSPLANT
     Dosage: DOSE AMOUNT - ONE 100MG CAPSULE?FREQUENCY - EVERY MORNING?ROUTE - DAILY
     Route: 048
     Dates: start: 20170130
  4. ZOLPIDEM [Concomitant]
     Active Substance: ZOLPIDEM\ZOLPIDEM TARTRATE
  5. ATORVASTATIN [Concomitant]
     Active Substance: ATORVASTATIN
  6. CYCLOSPORINE 25MG [Suspect]
     Active Substance: CYCLOSPORINE
     Indication: RENAL TRANSPLANT
     Dosage: DOSE AMOUNT - 3  25MG CAPSULES?FREQUENCY - EVERY EVENING?ROUTE - DAILY
     Route: 048
     Dates: start: 20170130
  7. DILTIAZEM. [Concomitant]
     Active Substance: DILTIAZEM

REACTIONS (2)
  - Swelling [None]
  - Renal pain [None]

NARRATIVE: CASE EVENT DATE: 201701
